FAERS Safety Report 7757540-7 (Version None)
Quarter: 2011Q3

REPORT INFORMATION
  Report Type: 
  Country: None (occurrence: None)
  Receive Date: 20110916
  Receipt Date: 20110907
  Transmission Date: 20111222
  Serious: Yes (Other)
  Sender: FDA-Public Use
  Company Number: NL-UCBSA-041030

PATIENT
  Age: 49 Year
  Sex: Female

DRUGS (6)
  1. CIMZIA [Suspect]
     Indication: RHEUMATOID ARTHRITIS
     Dosage: SECOND INJECTION ON 01/JUN/2011
     Route: 058
     Dates: start: 20110518, end: 20110101
  2. LEGENDAL [Concomitant]
     Dosage: UNKNOWN DOSE
  3. ALPRAZOLAM [Concomitant]
     Dosage: DAILY DOSE: 0.25 MG (0.5 MG -1/2 IN 1 DAY )
  4. SERTRALINE HYDROCHLORIDE [Concomitant]
  5. OMEPRAZOLE [Concomitant]
     Dosage: 20 MG AS NECESSARY
  6. THYRAX [Concomitant]

REACTIONS (2)
  - SUICIDAL IDEATION [None]
  - DEPRESSION [None]
